FAERS Safety Report 8906140 (Version 3)
Quarter: 2013Q1

REPORT INFORMATION
  Report Type: Spontaneous
  Country: JP (occurrence: JP)
  Receive Date: 20121110
  Receipt Date: 20130308
  Transmission Date: 20140127
  Serious: Yes (Hospitalization, Other)
  Sender: FDA-Public Use
  Company Number: JP-009507513-1211JPN004109

PATIENT
  Age: 75 Year
  Sex: Male
  Weight: 54 kg

DRUGS (3)
  1. JANUVIA TABLETS 50MG [Suspect]
     Indication: DIABETES MELLITUS
     Dosage: 50 MG, QD
     Route: 048
     Dates: start: 20110221
  2. JANUVIA TABLETS 100MG [Suspect]
     Route: 048
  3. AMARYL [Concomitant]
     Route: 048

REACTIONS (2)
  - Hypothyroidism [Recovering/Resolving]
  - Normal pressure hydrocephalus [Not Recovered/Not Resolved]
